FAERS Safety Report 5863947-5 (Version None)
Quarter: 2008Q3

REPORT INFORMATION
  Report Type: 
  Country: None (occurrence: None)
  Receive Date: 20080829
  Receipt Date: 20070920
  Transmission Date: 20090109
  Serious: No
  Sender: FDA-Public Use
  Company Number: JP-JNJFOC-20080805116

PATIENT

DRUGS (2)
  1. RISPERDAL [Suspect]
     Indication: DRUG USE FOR UNKNOWN INDICATION
     Route: 048
  2. WARFARIN SODIUM [Concomitant]
     Route: 048

REACTIONS (1)
  - PROTHROMBIN TIME PROLONGED [None]
